FAERS Safety Report 11148511 (Version 1)
Quarter: 2015Q2

REPORT INFORMATION
  Report Type: Spontaneous
  Country: US (occurrence: None)
  Receive Date: 20150527
  Receipt Date: 20150527
  Transmission Date: 20150821
  Serious: Yes (Hospitalization)
  Sender: FDA-Public Use
  Company Number: FK201502385

PATIENT
  Age: 81 Year
  Sex: Male

DRUGS (2)
  1. CARBOPLATIN (MANUFACTURER UNKNOWN) (CARBOPLATIN) (CARBOPLATIN) [Suspect]
     Active Substance: CARBOPLATIN
     Indication: MESOTHELIOMA
  2. PEMETREXED (PEMETREXED) (PEMETREXED) [Suspect]
     Active Substance: PEMETREXED
     Indication: MESOTHELIOMA

REACTIONS (2)
  - Superior mesenteric artery syndrome [None]
  - Weight decreased [None]
